FAERS Safety Report 5704769-5 (Version None)
Quarter: 2008Q2

REPORT INFORMATION
  Report Type: 
  Country: None (occurrence: None)
  Receive Date: 20080410
  Receipt Date: 20080318
  Transmission Date: 20081010
  Serious: Yes (Other)
  Sender: FDA-Public Use
  Company Number: US023016

PATIENT
  Sex: Female

DRUGS (2)
  1. PROVIGIL [Suspect]
     Indication: FATIGUE
     Dosage: 100 MG QAM ORAL
     Route: 048
  2. PROVIGIL [Suspect]
     Indication: FATIGUE
     Dosage: 200 MG QAM ORAL
     Route: 048

REACTIONS (4)
  - BACK PAIN [None]
  - CEREBROVASCULAR ACCIDENT [None]
  - PRURITUS [None]
  - STOMATITIS [None]
